FAERS Safety Report 17748179 (Version 1)
Quarter: 2020Q2

REPORT INFORMATION
  Report Type: Spontaneous
  Country: US (occurrence: US)
  Receive Date: 20200505
  Receipt Date: 20200505
  Transmission Date: 20200714
  Serious: No
  Sender: FDA-Public Use
  Company Number: US-BAUSCH-BL-2020-011034

PATIENT
  Age: 80 Year
  Sex: Female

DRUGS (4)
  1. RITE AID EYE WASH (PURIFIED WATER) [Suspect]
     Active Substance: WATER
     Indication: POSTOPERATIVE CARE
     Route: 047
     Dates: start: 20200402, end: 20200407
  2. OPCON-A [Suspect]
     Active Substance: NAPHAZOLINE HYDROCHLORIDE\PHENIRAMINE MALEATE
     Indication: EYE ALLERGY
  3. OPCON-A [Suspect]
     Active Substance: NAPHAZOLINE HYDROCHLORIDE\PHENIRAMINE MALEATE
     Indication: POSTOPERATIVE CARE
     Route: 047
     Dates: start: 20200402, end: 20200407
  4. RITE AID EYE WASH (PURIFIED WATER) [Suspect]
     Active Substance: WATER
     Indication: EYE ALLERGY

REACTIONS (3)
  - Eye discharge [Unknown]
  - Product leakage [Unknown]
  - Product sterility lacking [Unknown]

NARRATIVE: CASE EVENT DATE: 202004
